FAERS Safety Report 7040793-0 (Version None)
Quarter: 2010Q4

REPORT INFORMATION
  Report Type: 
  Country: None (occurrence: None)
  Receive Date: 20101013
  Receipt Date: 20101006
  Transmission Date: 20110411
  Serious: No
  Sender: FDA-Public Use
  Company Number: US-BIOGENIDEC-2010BI034715

PATIENT
  Age: 36 Year
  Sex: Male

DRUGS (3)
  1. AVONEX [Suspect]
     Indication: MULTIPLE SCLEROSIS
     Route: 030
     Dates: start: 20070312, end: 20080801
  2. AVONEX [Suspect]
     Route: 030
     Dates: start: 20080830, end: 20100106
  3. AVONEX [Suspect]
     Route: 030
     Dates: start: 20100901, end: 20101006

REACTIONS (2)
  - DEPRESSION [None]
  - HORMONE LEVEL ABNORMAL [None]
